FAERS Safety Report 18527055 (Version 1)
Quarter: 2020Q4

REPORT INFORMATION
  Report Type: Spontaneous
  Country: FR (occurrence: FR)
  Receive Date: 20201120
  Receipt Date: 20201120
  Transmission Date: 20210114
  Serious: Yes (Hospitalization)
  Sender: FDA-Public Use
  Company Number: FR-BAUSCH-BL-2020-033085

PATIENT
  Age: 62 Year
  Sex: Female

DRUGS (5)
  1. HEPARIN [Suspect]
     Active Substance: HEPARIN SODIUM
     Indication: ANGIOCARDIOGRAM
     Route: 042
     Dates: start: 20191212, end: 20191212
  2. ISOPTINE [Suspect]
     Active Substance: VERAPAMIL HYDROCHLORIDE
     Indication: ANGIOCARDIOGRAM
     Route: 042
     Dates: start: 20191212, end: 20191212
  3. GELOFUSINE [SUCCINYLATED GELATIN] [Suspect]
     Active Substance: SUCCINYLATED GELATIN
     Indication: ANGIOCARDIOGRAM
     Route: 042
     Dates: start: 20191212, end: 20191212
  4. ATROPINE. [Suspect]
     Active Substance: ATROPINE
     Indication: ANGIOCARDIOGRAM
     Route: 042
     Dates: start: 20191212, end: 20191212
  5. VISIPAQUE [Suspect]
     Active Substance: IODIXANOL
     Indication: ANGIOCARDIOGRAM
     Route: 042
     Dates: start: 20191212, end: 20191212

REACTIONS (4)
  - Pruritus [Recovered/Resolved]
  - Dysphonia [Recovered/Resolved]
  - Pharyngeal oedema [Recovered/Resolved]
  - Dyspnoea [Recovered/Resolved]

NARRATIVE: CASE EVENT DATE: 20191212
